FAERS Safety Report 6117694-5 (Version None)
Quarter: 2009Q1

REPORT INFORMATION
  Report Type: 
  Country: None (occurrence: None)
  Receive Date: 20090314
  Receipt Date: 20090127
  Transmission Date: 20090719
  Serious: No
  Sender: FDA-Public Use
  Company Number: US-ABBOTT-09P-163-0500334-00

PATIENT
  Sex: Male
  Weight: 88.53 kg

DRUGS (3)
  1. HUMIRA [Suspect]
     Indication: PSORIATIC ARTHROPATHY
     Dates: start: 20060101, end: 20070601
  2. HUMIRA [Suspect]
     Dates: start: 20070601, end: 20080601
  3. HUMIRA [Suspect]
     Dates: start: 20080601

REACTIONS (2)
  - ARTHRALGIA [None]
  - PSORIASIS [None]
